FAERS Safety Report 17592415 (Version 1)
Quarter: 2020Q1

REPORT INFORMATION
  Report Type: Spontaneous
  Country: US (occurrence: US)
  Receive Date: 20200327
  Receipt Date: 20200327
  Transmission Date: 20200409
  Serious: Yes (Other)
  Sender: FDA-Public Use
  Company Number: US-AMAG PHARMACEUTICALS, INC.-AMAG202001118

PATIENT
  Age: 26 Year
  Sex: Female
  Weight: 113.5 kg

DRUGS (1)
  1. MAKENA [Suspect]
     Active Substance: HYDROXYPROGESTERONE CAPROATE
     Indication: PREMATURE LABOUR
     Dosage: STARTED IN 2018 AT 16 WEEKS GA, RECEIVED WEEKLY UNTIL 25 WEEKS GA.
     Route: 058
     Dates: start: 2018, end: 2018

REACTIONS (1)
  - Premature delivery [Recovered/Resolved]

NARRATIVE: CASE EVENT DATE: 2018
